FAERS Safety Report 7521936-9 (Version None)
Quarter: 2011Q2

REPORT INFORMATION
  Report Type: 
  Country: None (occurrence: None)
  Receive Date: 20110603
  Receipt Date: 20110520
  Transmission Date: 20111010
  Serious: Yes (Other)
  Sender: FDA-Public Use
  Company Number: US-ELI_LILLY_AND_COMPANY-US201105000824

PATIENT
  Sex: Female

DRUGS (7)
  1. DIGOXIN [Concomitant]
  2. OXYBUTYNIN [Concomitant]
  3. FORTEO [Suspect]
     Indication: OSTEOPOROSIS
     Dosage: 20 UG, QD
     Dates: start: 20110101
  4. FOLIC ACID [Concomitant]
  5. METOPROLOL TARTRATE [Concomitant]
  6. FORTEO [Suspect]
     Dosage: 20 UG, QD
  7. AMBUTOL [Concomitant]

REACTIONS (3)
  - PELVIC FRACTURE [None]
  - FALL [None]
  - HIP FRACTURE [None]
